FAERS Safety Report 11438977 (Version 3)
Quarter: 2020Q3

REPORT INFORMATION
  Report Type: Report from Study
  Country: CL (occurrence: CL)
  Receive Date: 20150901
  Receipt Date: 20170425
  Transmission Date: 20201104
  Serious: Yes (Hospitalization)
  Sender: FDA-Public Use
  Company Number: CL-ACTELION-A-CH2015-116221

PATIENT
  Age: 36 Year
  Sex: Female
  Weight: 100 kg

DRUGS (9)
  1. MACITENTAN [Suspect]
     Active Substance: MACITENTAN
     Indication: PULMONARY ARTERIAL HYPERTENSION
     Dosage: 10 MG, QD
     Route: 048
     Dates: start: 20100427
  2. VENTAVIS [Concomitant]
     Active Substance: ILOPROST
     Indication: PULMONARY ARTERIAL HYPERTENSION
     Dosage: UNK
     Dates: start: 201411
  3. LANZOPRAZOL [Concomitant]
     Active Substance: LANSOPRAZOLE
  4. FUROSEMIDE. [Concomitant]
     Active Substance: FUROSEMIDE
     Dosage: 20 MG, OD
  5. SPIRONOLACTONE. [Concomitant]
     Active Substance: SPIRONOLACTONE
     Dosage: 25 MG, OD
  6. WARFARIN [Concomitant]
     Active Substance: WARFARIN
  7. SILDENAFIL. [Concomitant]
     Active Substance: SILDENAFIL
     Dosage: 12.5 MG, TID
  8. OXYGEN. [Concomitant]
     Active Substance: OXYGEN
  9. MACITENTAN [Suspect]
     Active Substance: MACITENTAN
     Indication: PULMONARY ARTERIAL HYPERTENSION
     Dosage: 10 MG, QD
     Route: 048
     Dates: start: 20100427

REACTIONS (14)
  - Oedema peripheral [Recovered/Resolved]
  - Right ventricular failure [Recovered/Resolved]
  - Atrial septal defect [Unknown]
  - Pulmonary arterial hypertension [Recovered/Resolved]
  - Hypokalaemia [Unknown]
  - Hepatomegaly [Recovered/Resolved]
  - Varicella [Recovered/Resolved]
  - Menstruation irregular [Unknown]
  - Dyspnoea paroxysmal nocturnal [Recovered/Resolved]
  - Dyspnoea exertional [Recovered/Resolved]
  - Blood bilirubin increased [Unknown]
  - Jugular vein distension [Recovered/Resolved]
  - Cyanosis [Recovered/Resolved]
  - Condition aggravated [Recovered/Resolved]

NARRATIVE: CASE EVENT DATE: 2013
